FAERS Safety Report 6862232-2 (Version None)
Quarter: 2010Q3

REPORT INFORMATION
  Report Type: 
  Country: None (occurrence: None)
  Receive Date: 20100721
  Receipt Date: 20100713
  Transmission Date: 20110219
  Serious: Yes (Hospitalization)
  Sender: FDA-Public Use
  Company Number: US-ASTRAZENECA-2010SE17538

PATIENT
  Age: 26903 Day
  Sex: Male
  Weight: 115.2 kg

DRUGS (9)
  1. SYMBICORT [Suspect]
     Indication: CHRONIC OBSTRUCTIVE PULMONARY DISEASE
     Dosage: 320 MCG
     Route: 055
     Dates: start: 20100331
  2. PLAVIX [Concomitant]
  3. MULTI-VITAMINS [Concomitant]
  4. FISHOILS [Concomitant]
  5. ASPIRIN [Concomitant]
  6. LISINOPRIL [Concomitant]
  7. SIMVASTATIN [Concomitant]
  8. GLUCOSAMINE/CHONDROITIN [Concomitant]
  9. MELOXICAM [Concomitant]

REACTIONS (6)
  - ATELECTASIS [None]
  - ATRIOVENTRICULAR BLOCK FIRST DEGREE [None]
  - CORONARY ARTERY DISEASE [None]
  - ELECTROCARDIOGRAM QRS COMPLEX ABNORMAL [None]
  - INTERNATIONAL NORMALISED RATIO DECREASED [None]
  - PNEUMONECTOMY [None]
